FAERS Safety Report 10745560 (Version 3)
Quarter: 2015Q3

REPORT INFORMATION
  Report Type: Spontaneous
  Country: US (occurrence: US)
  Receive Date: 20150128
  Receipt Date: 20150706
  Transmission Date: 20151125
  Serious: Yes (Life-Threatening, Hospitalization)
  Sender: FDA-Public Use
  Company Number: US-BAYER-2015-012939

PATIENT
  Age: 27 Year
  Sex: Female
  Weight: 41.72 kg

DRUGS (4)
  1. MIRENA [Suspect]
     Active Substance: LEVONORGESTREL
     Indication: CONTRACEPTION
     Dosage: 20 MCG/24HR, CONT
     Route: 015
     Dates: start: 20110121, end: 20130225
  2. NEUROCALM [Concomitant]
  3. FLAGYL [Concomitant]
     Active Substance: METRONIDAZOLE\METRONIDAZOLE HYDROCHLORIDE
  4. LEVAQUIN [Concomitant]
     Active Substance: LEVOFLOXACIN

REACTIONS (6)
  - Abdominal pain [None]
  - General physical health deterioration [None]
  - Uterine perforation [None]
  - Injury [None]
  - Infection [None]
  - Device issue [None]

NARRATIVE: CASE EVENT DATE: 20130220
